FAERS Safety Report 9740353 (Version 4)
Quarter: 2014Q1

REPORT INFORMATION
  Report Type: Report from Study
  Country: DE (occurrence: DE)
  Receive Date: 20131209
  Receipt Date: 20140228
  Transmission Date: 20141002
  Serious: Yes (Other)
  Sender: FDA-Public Use
  Company Number: DE-BAYER-2013-134901

PATIENT
  Age: 20 Year
  Sex: Female
  Weight: 60 kg

DRUGS (3)
  1. BETAFERON [Suspect]
     Indication: MULTIPLE SCLEROSIS
     Dosage: 1 ML, UNK
  2. BETAFERON [Suspect]
     Indication: MULTIPLE SCLEROSIS
     Dosage: 0.5 ML, UNK
  3. BETAFERON [Suspect]
     Indication: MULTIPLE SCLEROSIS
     Dosage: 1 ML, QOD
     Route: 058
     Dates: start: 20130902, end: 20140219

REACTIONS (8)
  - Walking distance test abnormal [None]
  - Coordination abnormal [Recovering/Resolving]
  - Musculoskeletal disorder [Recovering/Resolving]
  - Tremor [Recovering/Resolving]
  - Neuromyopathy [Recovering/Resolving]
  - Multiple sclerosis relapse [Recovering/Resolving]
  - Sensation of heaviness [Recovering/Resolving]
  - Multiple sclerosis [Unknown]
